FAERS Safety Report 7148955-9 (Version None)
Quarter: 2010Q4

REPORT INFORMATION
  Report Type: 
  Country: None (occurrence: None)
  Receive Date: 20101209
  Receipt Date: 20101202
  Transmission Date: 20110411
  Serious: Yes (Hospitalization, Other)
  Sender: FDA-Public Use
  Company Number: B0688016A

PATIENT
  Sex: Male

DRUGS (3)
  1. CLAVAMOX [Suspect]
     Indication: TONSILLITIS
     Route: 048
     Dates: start: 20090901
  2. IBUPROFEN [Concomitant]
     Route: 048
     Dates: start: 20090910
  3. PARACETAMOL [Concomitant]
     Route: 048
     Dates: start: 20090901

REACTIONS (4)
  - AGITATION [None]
  - DYSPNOEA [None]
  - ERYTHEMA [None]
  - TACHYCARDIA [None]
